FAERS Safety Report 7763749-9 (Version None)
Quarter: 2011Q3

REPORT INFORMATION
  Report Type: 
  Country: None (occurrence: None)
  Receive Date: 20110921
  Receipt Date: 20110916
  Transmission Date: 20111222
  Serious: Yes (Death)
  Sender: FDA-Public Use
  Company Number: BR-SHIRE-SPV1-2010-01707

PATIENT
  Sex: Male

DRUGS (1)
  1. IDURSULFASE [Suspect]
     Indication: MUCOPOLYSACCHARIDOSIS II
     Dosage: UNK
     Dates: start: 20071122, end: 20100913

REACTIONS (5)
  - MUCOPOLYSACCHARIDOSIS II [None]
  - TREATMENT NONCOMPLIANCE [None]
  - RESPIRATORY FAILURE [None]
  - REFUSAL OF TREATMENT BY RELATIVE [None]
  - DISEASE PROGRESSION [None]
